FAERS Safety Report 6150297-5 (Version None)
Quarter: 2009Q2

REPORT INFORMATION
  Report Type: 
  Country: None (occurrence: None)
  Receive Date: 20090409
  Receipt Date: 20090406
  Transmission Date: 20091009
  Serious: Yes (Hospitalization, Disabling)
  Sender: FDA-Public Use
  Company Number: US-MERCK-0902USA03132

PATIENT
  Age: 49 Year
  Sex: Female

DRUGS (2)
  1. SINGULAIR [Suspect]
     Indication: HYPERSENSITIVITY
     Route: 048
     Dates: start: 20070301, end: 20080801
  2. FLONASE [Concomitant]
     Indication: SINUS HEADACHE
     Route: 065

REACTIONS (5)
  - DEAFNESS [None]
  - DIZZINESS [None]
  - EAR HAEMORRHAGE [None]
  - HYSTERECTOMY [None]
  - NERVE INJURY [None]
